FAERS Safety Report 8601027 (Version 3)
Quarter: 2012Q4

REPORT INFORMATION
  Report Type: 
  Country: FR (occurrence: FR)
  Receive Date: 20120606
  Receipt Date: 20120918
  Transmission Date: 20130627
  Serious: Yes (Death)
  Sender: FDA-Public Use
  Company Number: FR-ROCHE-1073802

PATIENT
  Age: 71 Year
  Sex: Male

DRUGS (5)
  1. MABTHERA [Suspect]
     Indication: CHRONIC LYMPHOCYTIC LEUKAEMIA
     Route: 042
     Dates: end: 201112
  2. AVLOCARDYL [Concomitant]
     Route: 048
  3. PERMIXON [Concomitant]
     Route: 048
  4. ALLOPURINOL [Concomitant]
     Route: 048
  5. PARIET [Concomitant]
     Route: 048
     Dates: start: 201109

REACTIONS (3)
  - Meningioma [Fatal]
  - Coma [Fatal]
  - Leukoencephalopathy [Fatal]
